FAERS Safety Report 9106670 (Version 4)
Quarter: 2013Q2

REPORT INFORMATION
  Report Type: Report from Study
  Country: JP (occurrence: JP)
  Receive Date: 20130221
  Receipt Date: 20130401
  Transmission Date: 20140414
  Serious: Yes (Hospitalization)
  Sender: FDA-Public Use
  Company Number: JP-UCBSA-078303

PATIENT
  Age: 60 Year
  Sex: Female

DRUGS (15)
  1. CERTOLIZUMAB PEGOL [Suspect]
     Indication: RHEUMATOID ARTHRITIS
     Route: 058
     Dates: start: 20100105, end: 20100426
  2. CERTOLIZUMAB PEGOL [Suspect]
     Indication: RHEUMATOID ARTHRITIS
     Route: 058
     Dates: start: 20100427
  3. MELOXICAM [Concomitant]
     Indication: RHEUMATOID ARTHRITIS
     Route: 048
     Dates: start: 20061208
  4. METHOTREXATE [Concomitant]
     Indication: RHEUMATOID ARTHRITIS
     Route: 048
     Dates: start: 20090415
  5. LANSOPRAZOLE [Concomitant]
     Indication: PROPHYLAXIS AGAINST GASTROINTESTINAL ULCER
     Route: 048
     Dates: start: 20120717
  6. CETRAXATE HYDROCHLORIDE [Concomitant]
     Indication: PROPHYLAXIS AGAINST GASTROINTESTINAL ULCER
     Route: 048
     Dates: start: 20091208
  7. FURSULTIAMINE [Concomitant]
     Indication: VITAMIN SUPPLEMENTATION
     Route: 048
     Dates: start: 20081215
  8. OLOPATADINE HYDROCHLORIDE [Concomitant]
     Indication: CONJUNCTIVITIS ALLERGIC
     Route: 048
     Dates: start: 20071001
  9. TAMIFLU [Concomitant]
     Indication: VIRAL INFECTION
     Dosage: DAILY DOSE: 150 MG
     Dates: start: 20130128
  10. BUSCOPAN [Concomitant]
     Indication: ABDOMINAL PAIN
     Dosage: DAILY DOSE: 30 MG
     Dates: start: 20130128
  11. BUSCOPAN [Concomitant]
     Indication: CONSTIPATION
     Dosage: DAILY DOSE: 30 MG
     Dates: start: 20130128
  12. MAGMITT [Concomitant]
     Indication: CONSTIPATION
     Dosage: DAILY DOE: 990 MG
     Dates: start: 20130128
  13. MAGMITT [Concomitant]
     Indication: ABDOMINAL PAIN
     Dosage: DAILY DOE: 990 MG
     Dates: start: 20130128
  14. ALOSSEN [Concomitant]
     Indication: ABDOMINAL PAIN
     Dosage: DAILY DOSE 0.5 G
     Dates: start: 20130128
  15. ALOSSEN [Concomitant]
     Indication: CONSTIPATION
     Dosage: DAILY DOSE 0.5 G
     Dates: start: 20130128

REACTIONS (1)
  - Ileus paralytic [Recovered/Resolved]
